FAERS Safety Report 4915504-2 (Version None)
Quarter: 2006Q1

REPORT INFORMATION
  Report Type: 
  Country: None (occurrence: None)
  Receive Date: 20060113
  Receipt Date: 20051004
  Transmission Date: 20060701
  Serious: No
  Sender: FDA-Public Use
  Company Number: 2005SP003378

PATIENT

DRUGS (3)
  1. LUNESTA [Suspect]
     Dosage: 2 MG;ORAL
     Route: 048
     Dates: start: 20050101, end: 20050101
  2. AMBIEN [Suspect]
     Dates: end: 20050101
  3. AMBIEN [Suspect]
     Dates: start: 20050101

REACTIONS (3)
  - DRUG INEFFECTIVE [None]
  - DRUG WITHDRAWAL SYNDROME [None]
  - INSOMNIA [None]
